FAERS Safety Report 7449657-1 (Version None)
Quarter: 2011Q2

REPORT INFORMATION
  Report Type: 
  Country: None (occurrence: None)
  Receive Date: 20110420
  Receipt Date: 20110407
  Transmission Date: 20111010
  Serious: Yes (Hospitalization)
  Sender: FDA-Public Use
  Company Number: 2011MA003548

PATIENT
  Age: 50 Year
  Sex: Female

DRUGS (3)
  1. LINEZOLID [Concomitant]
  2. METOCLOPRAMIDE [Suspect]
     Dosage: 10 MG; Q8;
  3. TRYPTOPHAN [Concomitant]

REACTIONS (4)
  - SEROTONIN SYNDROME [None]
  - MYDRIASIS [None]
  - CLONUS [None]
  - NEUROLOGICAL DECOMPENSATION [None]
